FAERS Safety Report 6343388-7 (Version None)
Quarter: 2009Q3

REPORT INFORMATION
  Report Type: 
  Country: None (occurrence: None)
  Receive Date: 20090908
  Receipt Date: 20090831
  Transmission Date: 20100115
  Serious: Yes (Other)
  Sender: FDA-Public Use
  Company Number: PHHY2009BR37300

PATIENT
  Sex: Female
  Weight: 57 kg

DRUGS (2)
  1. ENABLEX [Suspect]
     Indication: HYPERTONIC BLADDER
     Dosage: 1 TABLET IN THE MORNING
     Route: 048
     Dates: start: 20090828
  2. OMEPRAZOLE [Concomitant]
     Dosage: 20 MG, UNK
     Dates: start: 20090901

REACTIONS (4)
  - ABDOMINAL DISTENSION [None]
  - EXPIRED DRUG ADMINISTERED [None]
  - NAUSEA [None]
  - PRURITUS [None]
